FAERS Safety Report 7992651-2 (Version None)
Quarter: 2011Q4

REPORT INFORMATION
  Report Type: 
  Country: None (occurrence: None)
  Receive Date: 20111219
  Receipt Date: 20110510
  Transmission Date: 20120403
  Serious: No
  Sender: FDA-Public Use
  Company Number: US-ASTRAZENECA-2011SE28345

PATIENT
  Age: 64 Year
  Sex: Female

DRUGS (2)
  1. CRESTOR [Suspect]
     Route: 048
     Dates: start: 20060101, end: 20060101
  2. CRESTOR [Suspect]
     Route: 048
     Dates: start: 20110503, end: 20110503

REACTIONS (5)
  - MALAISE [None]
  - ABDOMINAL PAIN UPPER [None]
  - SALIVARY HYPERSECRETION [None]
  - DYSPHAGIA [None]
  - CONSTIPATION [None]
